FAERS Safety Report 7546456-7 (Version None)
Quarter: 2011Q2

REPORT INFORMATION
  Report Type: 
  Country: None (occurrence: None)
  Receive Date: 20110607
  Receipt Date: 20110523
  Transmission Date: 20111010
  Serious: Yes (Hospitalization)
  Sender: FDA-Public Use
  Company Number: 2011MA006326

PATIENT
  Age: 31 Year
  Sex: Male

DRUGS (2)
  1. TETRACOSACTRIN [Concomitant]
  2. BETAMETHASONE DIPROPIONATE [Suspect]
     Indication: MULTIPLE SCLEROSIS
     Dosage: 4 MG;QD

REACTIONS (6)
  - REFUSAL OF TREATMENT BY PATIENT [None]
  - PARAPARESIS [None]
  - LHERMITTE'S SIGN [None]
  - OSTEONECROSIS [None]
  - DRUG INTOLERANCE [None]
  - URINARY INCONTINENCE [None]
